FAERS Safety Report 20994706 (Version 2)
Quarter: 2022Q2

REPORT INFORMATION
  Report Type: Report from Study
  Country: SA (occurrence: SA)
  Receive Date: 20220622
  Receipt Date: 20220627
  Transmission Date: 20220721
  Serious: Yes (Hospitalization)
  Sender: FDA-Public Use
  Company Number: SA-BIOGEN-2022BI01133813

PATIENT
  Age: 14 Year
  Sex: Female

DRUGS (2)
  1. SPINRAZA [Suspect]
     Active Substance: NUSINERSEN
     Indication: Spinal muscular atrophy
     Dosage: LOADING DOSES (0, 14, 28, 63) THEN 1 MAINTENANCE DOSE EVERY 4 MONTHS
     Dates: start: 20211214
  2. SPINRAZA [Suspect]
     Active Substance: NUSINERSEN
     Dates: start: 20211214

REACTIONS (4)
  - Oxygen saturation decreased [Recovered/Resolved]
  - Productive cough [Recovered/Resolved]
  - Pyrexia [Recovered/Resolved]
  - Influenza [Recovered/Resolved]

NARRATIVE: CASE EVENT DATE: 20220615
